FAERS Safety Report 7707181-2 (Version None)
Quarter: 2011Q3

REPORT INFORMATION
  Report Type: 
  Country: None (occurrence: None)
  Receive Date: 20110819
  Receipt Date: 20110819
  Transmission Date: 20111222
  Serious: Yes (Life-Threatening)
  Sender: FDA-Public Use
  Company Number: None

PATIENT
  Age: 3 Month
  Sex: Female

DRUGS (2)
  1. SEVOFLURANE [Suspect]
     Indication: GENERAL ANAESTHESIA
  2. VECURONIUM BROMIDE [Suspect]
     Indication: GENERAL ANAESTHESIA

REACTIONS (6)
  - MITRAL VALVE INCOMPETENCE [None]
  - GLYCOGEN STORAGE DISEASE TYPE II [None]
  - HYPERTROPHIC CARDIOMYOPATHY [None]
  - VENTRICULAR FIBRILLATION [None]
  - RESPIRATORY DISTRESS [None]
  - HYPOTONIA [None]
